FAERS Safety Report 6435192-6 (Version None)
Quarter: 2009Q4

REPORT INFORMATION
  Report Type: 
  Country: None (occurrence: None)
  Receive Date: 20091110
  Receipt Date: 20091109
  Transmission Date: 20100525
  Serious: Yes (Life-Threatening)
  Sender: FDA-Public Use
  Company Number: GB-WYE-G04832309

PATIENT
  Age: 78 Year

DRUGS (8)
  1. TAZOCIN [Suspect]
     Indication: SEPSIS
     Dosage: 4.5 G (FREQUENCY UNKNOWN)
     Route: 042
     Dates: start: 20091021, end: 20091021
  2. FRUSEMIDE [Concomitant]
     Dosage: 2 MG (FREQUENCY UNKNOWN)
     Route: 042
     Dates: start: 20091020
  3. PROPOFOL [Concomitant]
     Indication: SEDATION
     Route: 042
     Dates: start: 20091015
  4. HEPARIN [Concomitant]
     Indication: DEEP VEIN THROMBOSIS
     Dosage: 500 IU (FREQUENCY UNKNOWN)
     Route: 042
     Dates: start: 20091015
  5. LEVOTHYROXINE SODIUM [Concomitant]
     Indication: HYPOTHYROIDISM
     Dosage: 75 UG (FREQUENCY UNKNOWN)
     Route: 048
  6. PARACETAMOL [Concomitant]
     Indication: PAIN
     Dosage: 1 G (FREQUENCY UNKNOWN)
     Route: 042
     Dates: start: 20091015
  7. AMLODIPINE [Concomitant]
     Indication: HYPERTENSION
     Dosage: 5 MG (FREQUENCY UNKNOWN)
     Route: 048
     Dates: start: 20091019
  8. NITROGLYCERIN [Concomitant]
     Dosage: 5 MG (FREQUENCY UNKNOWN)
     Route: 062
     Dates: start: 20091016

REACTIONS (3)
  - CARDIAC ARREST [None]
  - HYPOTENSION [None]
  - OBSTRUCTIVE AIRWAYS DISORDER [None]
